FAERS Safety Report 24254202 (Version 1)
Quarter: 2024Q3

REPORT INFORMATION
  Report Type: Spontaneous
  Country: JP (occurrence: JP)
  Receive Date: 20240827
  Receipt Date: 20240827
  Transmission Date: 20241017
  Serious: Yes (Hospitalization, Other)
  Sender: PFIZER
  Company Number: JP-PFIZER INC-PV202400108175

PATIENT
  Age: 60 Year
  Sex: Male
  Weight: 69 kg

DRUGS (9)
  1. NIRMATRELVIR\RITONAVIR [Interacting]
     Active Substance: NIRMATRELVIR\RITONAVIR
     Indication: COVID-19 treatment
     Dosage: [NIRMATRELVIR 300 MG]/[RITONAVIR 100 MG]; 2X/DAY
  2. EPLERENONE [Interacting]
     Active Substance: EPLERENONE
     Dosage: 1 DF, 1X/DAY, AFTER BREAKFAST
  3. SACUBITRIL\VALSARTAN [Concomitant]
     Active Substance: SACUBITRIL\VALSARTAN
     Dosage: 1 DF, 2X/DAY, AFTER BREAKFAST AND DINNER
  4. BISOPROLOL [Concomitant]
     Active Substance: BISOPROLOL\BISOPROLOL FUMARATE
     Dosage: 1 DF, 1X/DAY, AFTER BREAKFAST
  5. EMPAGLIFLOZIN [Concomitant]
     Active Substance: EMPAGLIFLOZIN
     Dosage: 1 DF, 1X/DAY, AFTER BREAKFAST
  6. FUROSEMIDE [Concomitant]
     Active Substance: FUROSEMIDE
     Dosage: 1 DF, 1X/DAY, AFTER BREAKFAST
  7. LICORICE ROOT EXTRACT\RHUBARB [Concomitant]
     Active Substance: LICORICE ROOT EXTRACT\RHUBARB
     Dosage: 2 PACKAGES, 1X/DAY, BEFORE BEDTIME
  8. ALFACALCIDOL [Concomitant]
     Active Substance: ALFACALCIDOL
     Dosage: 1 DF, 1X/DAY, AFTER BREAKFAST
  9. DENOSUMAB [Concomitant]
     Active Substance: DENOSUMAB
     Dosage: 1 UNIT ONCE EVERY 6 MONTHS
     Route: 058

REACTIONS (3)
  - Contraindicated product administered [Unknown]
  - Drug interaction [Unknown]
  - Hyperkalaemia [Unknown]
